FAERS Safety Report 5275790-9 (Version None)
Quarter: 2007Q1

REPORT INFORMATION
  Report Type: 
  Country: None (occurrence: None)
  Receive Date: 20070326
  Receipt Date: 20070322
  Transmission Date: 20070707
  Serious: Yes (Hospitalization)
  Sender: FDA-Public Use
  Company Number: FR-GLAXOSMITHKLINE-B0462706A

PATIENT
  Age: 1 Year
  Sex: Male
  Weight: 11 kg

DRUGS (3)
  1. AUGMENTIN '125' [Suspect]
     Indication: UPPER RESPIRATORY TRACT INFECTION
     Dosage: 1UNIT THREE TIMES PER DAY
     Route: 048
     Dates: start: 20070205, end: 20070210
  2. DOLIPRANE [Suspect]
     Indication: UPPER RESPIRATORY TRACT INFECTION
     Dosage: 150MG FOUR TIMES PER DAY
     Route: 048
     Dates: start: 20070205, end: 20070210
  3. CELESTENE [Concomitant]
     Route: 048
     Dates: start: 20070205, end: 20070206

REACTIONS (5)
  - ERYTHEMA MULTIFORME [None]
  - FACE OEDEMA [None]
  - OEDEMA GENITAL [None]
  - PYREXIA [None]
  - RASH GENERALISED [None]
